FAERS Safety Report 6828416-4 (Version None)
Quarter: 2010Q3

REPORT INFORMATION
  Report Type: 
  Country: None (occurrence: None)
  Receive Date: 20100709
  Receipt Date: 20070207
  Transmission Date: 20110219
  Serious: No
  Sender: FDA-Public Use
  Company Number: US-PFIZER INC-2007010679

PATIENT
  Sex: Male
  Weight: 72.57 kg

DRUGS (4)
  1. CHANTIX [Suspect]
     Indication: EX-TOBACCO USER
     Dates: start: 20070205
  2. MEDROL [Interacting]
     Dates: start: 20070205
  3. ATIVAN [Interacting]
     Dates: start: 20070207
  4. NEXIUM [Concomitant]

REACTIONS (2)
  - DRUG INTERACTION [None]
  - FEELING ABNORMAL [None]
